FAERS Safety Report 4398829-1 (Version None)
Quarter: 2004Q2

REPORT INFORMATION
  Report Type: 
  Country: None (occurrence: None)
  Receive Date: 20040621
  Receipt Date: 20031027
  Transmission Date: 20050107
  Serious: Yes (Death)
  Sender: FDA-Public Use
  Company Number: USA-2003-0007328

PATIENT
  Age: 61 Year
  Sex: Male
  Weight: 74.8 kg

DRUGS (7)
  1. OXYCODONE HCL [Suspect]
  2. TEMAZEPAM [Suspect]
  3. ETOH (ETHANOL) [Suspect]
  4. CAFFEINE (CAFFEINE) [Suspect]
  5. ACETAMINOPHEN [Suspect]
  6. LASIX [Suspect]
  7. WARFARIN (WARFARIN) [Suspect]

REACTIONS (2)
  - INTENTIONAL OVERDOSE [None]
  - MULTIPLE DRUG OVERDOSE [None]
